FAERS Safety Report 6832864-6 (Version None)
Quarter: 2010Q3

REPORT INFORMATION
  Report Type: 
  Country: None (occurrence: None)
  Receive Date: 20100712
  Receipt Date: 20070430
  Transmission Date: 20110219
  Serious: No
  Sender: FDA-Public Use
  Company Number: US-PFIZER INC-2007022974

PATIENT
  Sex: Female

DRUGS (13)
  1. CHANTIX [Suspect]
     Indication: SMOKING CESSATION THERAPY
     Route: 048
     Dates: start: 20070307
  2. WARFARIN [Interacting]
     Indication: ANTICOAGULANT THERAPY
     Route: 048
  3. LEVOTHYROXINE [Concomitant]
     Route: 048
  4. PROTONIX [Concomitant]
     Route: 048
  5. FUROSEMIDE [Concomitant]
     Route: 048
  6. LOVASTATIN [Concomitant]
     Route: 048
  7. BISOPROLOL [Concomitant]
     Route: 048
  8. ZOLOFT [Concomitant]
     Route: 048
  9. LISINOPRIL [Concomitant]
     Route: 048
  10. NIFEDICAL [Concomitant]
     Route: 048
  11. ACETYLSALICYLIC ACID [Concomitant]
     Route: 048
  12. ZETIA [Concomitant]
     Route: 048
  13. VITAMINS [Concomitant]
     Route: 048

REACTIONS (4)
  - BLOOD DISORDER [None]
  - DRUG INTERACTION [None]
  - INCORRECT DOSE ADMINISTERED [None]
  - NAUSEA [None]
